FAERS Safety Report 8580004-8 (Version None)
Quarter: 2012Q3

REPORT INFORMATION
  Report Type: 
  Country: None (occurrence: None)
  Receive Date: 20120731
  Receipt Date: 20120731
  Transmission Date: 20120928
  Serious: Yes (Life-Threatening, Hospitalization)
  Sender: FDA-Public Use
  Company Number: None

PATIENT
  Age: 52 Year
  Sex: Female
  Weight: 59.9 kg

DRUGS (1)
  1. ISOVUE-370 [Suspect]
     Indication: SCAN WITH CONTRAST
     Dosage: 90ML IV
     Route: 042
     Dates: start: 20120725, end: 20120725

REACTIONS (8)
  - ABDOMINAL PAIN [None]
  - VOMITING [None]
  - PALATAL OEDEMA [None]
  - CONTRAST MEDIA REACTION [None]
  - RESPIRATORY DISTRESS [None]
  - PHARYNGEAL OEDEMA [None]
  - SNEEZING [None]
  - DISCOMFORT [None]
